FAERS Safety Report 24927656 (Version 1)
Quarter: 2025Q1

REPORT INFORMATION
  Report Type: Spontaneous
  Country: CA (occurrence: None)
  Receive Date: 20250203
  Receipt Date: 20250203
  Transmission Date: 20250408
  Serious: Yes (Hospitalization, Other)
  Sender: FDA-CTU
  Company Number: None

PATIENT
  Age: 44 Year
  Sex: Female
  Weight: 58 kg

DRUGS (1)
  1. OZEMPIC [Suspect]
     Active Substance: SEMAGLUTIDE
     Dates: start: 20250201, end: 20250203

REACTIONS (6)
  - Abdominal distension [None]
  - Nausea [None]
  - Abdominal pain upper [None]
  - Feeding disorder [None]
  - Vomiting [None]
  - Somnolence [None]

NARRATIVE: CASE EVENT DATE: 20250201
